FAERS Safety Report 5792444-0 (Version None)
Quarter: 2008Q2

REPORT INFORMATION
  Report Type: 
  Country: None (occurrence: None)
  Receive Date: 20080623
  Receipt Date: 20080610
  Transmission Date: 20081010
  Serious: Yes (Death, Other)
  Sender: FDA-Public Use
  Company Number: 2008BI008580

PATIENT
  Sex: Female

DRUGS (1)
  1. TYSABRI [Suspect]
     Indication: MULTIPLE SCLEROSIS
     Dosage: IV
     Route: 042
     Dates: start: 20080131, end: 20080228

REACTIONS (9)
  - BEDRIDDEN [None]
  - DIABETES MELLITUS [None]
  - DIABETIC ULCER [None]
  - FOOT AMPUTATION [None]
  - GANGRENE [None]
  - LOCALISED INFECTION [None]
  - MALAISE [None]
  - OPPORTUNISTIC INFECTION [None]
  - SEPSIS [None]
